FAERS Safety Report 9985403 (Version 1)
Quarter: 2014Q1

REPORT INFORMATION
  Report Type: Report from Study
  Country: US (occurrence: US)
  Receive Date: 20140307
  Receipt Date: 20140307
  Transmission Date: 20141002
  Serious: No
  Sender: FDA-Public Use
  Company Number: US-ABBVIE-14P-163-1185749-00

PATIENT
  Age: 29 Year
  Sex: Female

DRUGS (6)
  1. HUMIRA [Suspect]
     Indication: CROHN^S DISEASE
     Dates: start: 20131110
  2. PENTASA [Concomitant]
     Indication: CROHN^S DISEASE
     Dosage: SIX
  3. AZATHIOPRINE [Concomitant]
     Indication: CROHN^S DISEASE
  4. METOPROLOL [Concomitant]
     Indication: HYPERTENSION
  5. NEXIUM [Concomitant]
     Indication: ABDOMINAL PAIN UPPER
  6. NEXIUM [Concomitant]
     Indication: DYSPEPSIA

REACTIONS (7)
  - Pain [Not Recovered/Not Resolved]
  - Drug effect decreased [Not Recovered/Not Resolved]
  - Decreased appetite [Recovered/Resolved]
  - Vomiting [Not Recovered/Not Resolved]
  - Arthralgia [Not Recovered/Not Resolved]
  - Decreased appetite [Recovered/Resolved]
  - Crohn^s disease [Not Recovered/Not Resolved]
